FAERS Safety Report 11655296 (Version 2)
Quarter: 2015Q4

REPORT INFORMATION
  Report Type: Spontaneous
  Country: NL (occurrence: NL)
  Receive Date: 20151023
  Receipt Date: 20151208
  Transmission Date: 20160304
  Serious: Yes (Death)
  Sender: FDA-Public Use
  Company Number: NL-ASTELLAS-2015US031655

PATIENT
  Age: 70 Year
  Sex: Female

DRUGS (1)
  1. PROGRAFT [Suspect]
     Active Substance: TACROLIMUS
     Indication: LIVER TRANSPLANT
     Dosage: 0.5 MG, UNKNOWN FREQ.
     Route: 065

REACTIONS (2)
  - Drug dispensing error [Unknown]
  - Liver transplant rejection [Fatal]
